FAERS Safety Report 9733417 (Version 2)
Quarter: 2013Q4

REPORT INFORMATION
  Report Type: Spontaneous
  Country: ES (occurrence: ES)
  Receive Date: 20131205
  Receipt Date: 20131220
  Transmission Date: 20140711
  Serious: Yes (Death, Life-Threatening, Hospitalization)
  Sender: FDA-Public Use
  Company Number: ES-009507513-1311ESP012809

PATIENT
  Age: 71 Year
  Sex: Female

DRUGS (9)
  1. VELMETIA [Suspect]
     Dosage: UNK
     Route: 048
     Dates: start: 20120601, end: 20130630
  2. PHENYTOIN [Concomitant]
  3. NIMODIPINE [Concomitant]
  4. HYDROCHLOROTHIAZIDE (+) VALSARTAN [Concomitant]
  5. ACFOL [Concomitant]
  6. OMEPRAZOLE [Concomitant]
  7. SIMVASTATIN [Concomitant]
  8. OMACOR [Concomitant]
  9. BETAHISTINE [Concomitant]

REACTIONS (1)
  - Lactic acidosis [Fatal]
